FAERS Safety Report 8366242-8 (Version None)
Quarter: 2012Q2

REPORT INFORMATION
  Report Type: 
  Country: None (occurrence: None)
  Receive Date: 20120517
  Receipt Date: 20120514
  Transmission Date: 20120825
  Serious: Yes (Other)
  Sender: FDA-Public Use
  Company Number: PHEH2012US007251

PATIENT
  Sex: Male
  Weight: 113.38 kg

DRUGS (6)
  1. LYRICA [Suspect]
     Indication: NEUROPATHY PERIPHERAL
     Dosage: 150 MG
     Route: 048
  2. LOVASTATIN [Concomitant]
     Indication: HYPERTENSION
     Dosage: UNK UKN, UNK
  3. LYRICA [Suspect]
     Dosage: UNK UKN, UNK
  4. CARBAMAZEPINE [Interacting]
     Indication: NEUROPATHY PERIPHERAL
     Dosage: 500 MG ORAL TABLET THREE TIMES A DAY
     Route: 048
  5. WARFARIN SODIUM [Interacting]
     Indication: PROPHYLAXIS
     Dosage: 5MG ORAL CAPSULE ONCE A DAY
     Route: 048
  6. WARFARIN SODIUM [Interacting]
     Dosage: 5MG TWICE A DAY
     Route: 048

REACTIONS (4)
  - MEMORY IMPAIRMENT [None]
  - CEREBRAL HAEMORRHAGE [None]
  - CEREBROVASCULAR ACCIDENT [None]
  - ANTICOAGULATION DRUG LEVEL BELOW THERAPEUTIC [None]
